FAERS Safety Report 18707776 (Version 1)
Quarter: 2021Q1

REPORT INFORMATION
  Report Type: Other
  Country: FR (occurrence: FR)
  Receive Date: 20210106
  Receipt Date: 20210106
  Transmission Date: 20210419
  Serious: Yes (Other)
  Sender: FDA-Public Use
  Company Number: FR-DEXPHARM-20201197

PATIENT
  Age: 34 Year
  Sex: Female

DRUGS (5)
  1. RANITIDINE. [Suspect]
     Active Substance: RANITIDINE
  2. URAPIDIL [Concomitant]
     Active Substance: URAPIDIL
     Indication: HYPERTENSION
  3. AMLODIPINE [Concomitant]
     Active Substance: AMLODIPINE BESYLATE
     Indication: HYPERTENSION
  4. ESOMEPRAZOLE. [Interacting]
     Active Substance: ESOMEPRAZOLE MAGNESIUM
  5. CREATINE ETHYL ESTER HYDROCHLORIDE [DIETARY SUPPLEMENT] [Interacting]
     Active Substance: DIETARY SUPPLEMENT

REACTIONS (2)
  - Blood creatinine increased [Recovered/Resolved]
  - Drug interaction [Recovered/Resolved]
